FAERS Safety Report 12647306 (Version 1)
Quarter: 2016Q3

REPORT INFORMATION
  Report Type: Spontaneous
  Country: US (occurrence: None)
  Receive Date: 20160811
  Receipt Date: 20160811
  Transmission Date: 20161109
  Serious: Yes (Hospitalization)
  Sender: FDA-Public Use
  Company Number: None

PATIENT
  Age: 68 Year
  Sex: Female
  Weight: 89.5 kg

DRUGS (1)
  1. TRADJENTA [Suspect]
     Active Substance: LINAGLIPTIN

REACTIONS (5)
  - Blood glucose increased [None]
  - Abdominal pain [None]
  - Lipase increased [None]
  - Nausea [None]
  - Amylase increased [None]

NARRATIVE: CASE EVENT DATE: 20160805
